FAERS Safety Report 8137443-9 (Version None)
Quarter: 2012Q1

REPORT INFORMATION
  Report Type: 
  Country: None (occurrence: None)
  Receive Date: 20120209
  Receipt Date: 20120202
  Transmission Date: 20120608
  Serious: Yes (Other)
  Sender: FDA-Public Use
  Company Number: 2012SP003862

PATIENT
  Age: 41 Year
  Sex: Female

DRUGS (8)
  1. LEVONORGESTREL [Concomitant]
  2. TEMODAL [Suspect]
     Dosage: 75 MG/M2;QD, 220 MG; 220 MG; 220 MG; 220; 220 MG
     Dates: start: 20120116, end: 20120120
  3. TEMODAL [Suspect]
     Dosage: 75 MG/M2;QD, 220 MG; 220 MG; 220 MG; 220; 220 MG
     Dates: start: 20111208, end: 20111212
  4. TEMODAL [Suspect]
     Dosage: 75 MG/M2;QD, 220 MG; 220 MG; 220 MG; 220; 220 MG
     Dates: start: 20110801, end: 20110915
  5. TEMODAL [Suspect]
     Dosage: 75 MG/M2;QD, 220 MG; 220 MG; 220 MG; 220; 220 MG
     Dates: start: 20111015, end: 20111019
  6. TEMODAL [Suspect]
     Dosage: 75 MG/M2;QD, 220 MG; 220 MG; 220 MG; 220; 220 MG
     Dates: start: 20111110, end: 20111114
  7. KEPPRA [Concomitant]
  8. PREDNISOLONE [Concomitant]

REACTIONS (2)
  - SKIN NECROSIS [None]
  - THROMBOSIS [None]
